FAERS Safety Report 5690784-7 (Version None)
Quarter: 2008Q2

REPORT INFORMATION
  Report Type: 
  Country: None (occurrence: None)
  Receive Date: 20080401
  Receipt Date: 20080326
  Transmission Date: 20081010
  Serious: Yes (Other)
  Sender: FDA-Public Use
  Company Number: A0717620A

PATIENT
  Sex: Female

DRUGS (3)
  1. LAMICTAL [Suspect]
     Indication: EPILEPSY
     Dosage: 100MG TWICE PER DAY
     Route: 048
     Dates: start: 20070501
  2. DEPAKOTE [Concomitant]
  3. KEPPRA [Concomitant]

REACTIONS (7)
  - BALANCE DISORDER [None]
  - COORDINATION ABNORMAL [None]
  - DYSKINESIA [None]
  - MEMORY IMPAIRMENT [None]
  - MOOD ALTERED [None]
  - SUICIDAL IDEATION [None]
  - TREMOR [None]
